FAERS Safety Report 10592956 (Version 1)
Quarter: 2014Q4

REPORT INFORMATION
  Report Type: Spontaneous
  Country: US (occurrence: US)
  Receive Date: 20141119
  Receipt Date: 20141119
  Transmission Date: 20150529
  Serious: No
  Sender: FDA-Public Use
  Company Number: US-PFIZER INC-2014314031

PATIENT
  Age: 54 Year
  Sex: Female
  Weight: 79.37 kg

DRUGS (3)
  1. ADVIL [Suspect]
     Active Substance: IBUPROFEN
     Dosage: 400 MG (TWO EACH), ONCE A DAY IN THE MORNING
     Dates: start: 201411, end: 20141111
  2. ADVIL [Suspect]
     Active Substance: IBUPROFEN
     Indication: LIGAMENT SPRAIN
     Dosage: 200 MG, ONCE A DAY IN THE MORNING
     Dates: start: 20141109, end: 201411
  3. PERCOCET [Concomitant]
     Active Substance: ACETAMINOPHEN\OXYCODONE HYDROCHLORIDE
     Dosage: OXYCODONE HYDROCHLORIDE 3MG, PARACETAMOL 525MG, ONCE A DAY IN THE NIGHT

REACTIONS (2)
  - Headache [Recovered/Resolved]
  - Drug ineffective [Unknown]

NARRATIVE: CASE EVENT DATE: 201411
